FAERS Safety Report 4403936-0 (Version None)
Quarter: 2004Q3

REPORT INFORMATION
  Report Type: 
  Country: None (occurrence: None)
  Receive Date: 20040719
  Receipt Date: 20040702
  Transmission Date: 20050211
  Serious: Yes (Hospitalization)
  Sender: FDA-Public Use
  Company Number: 2004-BP-05594YA (0)

PATIENT
  Sex: Male

DRUGS (1)
  1. HARNAL (TAMSULOSIN) (TAMSULOSIN HYDROCHLORIDE) [Suspect]
     Indication: BENIGN PROSTATIC HYPERPLASIA
     Dosage: 0.2 MG PO
     Route: 048
     Dates: start: 20030916, end: 20040116

REACTIONS (1)
  - DRUG ERUPTION [None]
